FAERS Safety Report 6906458-8 (Version None)
Quarter: 2010Q3

REPORT INFORMATION
  Report Type: 
  Country: None (occurrence: None)
  Receive Date: 20100804
  Receipt Date: 20100726
  Transmission Date: 20110219
  Serious: Yes (Other)
  Sender: FDA-Public Use
  Company Number: US-PERRIGO-10US011626

PATIENT
  Sex: Male
  Weight: 81.633 kg

DRUGS (4)
  1. ACETAMINOPHEN [Suspect]
     Indication: PAIN
     Dosage: 500-1000 MG, 1-2 TIMES DAILY AS NEEDED
     Route: 048
     Dates: start: 20100706, end: 20100724
  2. TRAMADOL HYDROCHLORIDE [Suspect]
     Indication: NEURALGIA
     Dosage: 100 MG, QD, IN PM
     Route: 048
  3. PHENYLEPHRINE HCL [Concomitant]
     Indication: HEADACHE
     Dosage: UNK
     Route: 048
     Dates: end: 20100720
  4. PREDNISONE [Concomitant]
     Indication: PRODUCT USED FOR UNKNOWN INDICATION
     Dosage: 5 MG, QD
     Route: 048
     Dates: start: 20100721

REACTIONS (5)
  - DRUG INTERACTION [None]
  - DYSPHAGIA [None]
  - LIP SWELLING [None]
  - ODYNOPHAGIA [None]
  - VISION BLURRED [None]
